FAERS Safety Report 4296361-7 (Version None)
Quarter: 2004Q1

REPORT INFORMATION
  Report Type: 
  Country: None (occurrence: None)
  Receive Date: 20040213
  Receipt Date: 20040213
  Transmission Date: 20041129
  Serious: Yes (Hospitalization)
  Sender: FDA-Public Use
  Company Number: None

PATIENT
  Sex: Male
  Weight: 73.4827 kg

DRUGS (2)
  1. ELOCON [Suspect]
     Indication: GENITAL RASH
     Dosage: TOPICAL [PRIOR TO ADMISSION]
     Route: 061
  2. LIPITOR [Concomitant]

REACTIONS (3)
  - BURNING SENSATION [None]
  - GENITAL PRURITUS MALE [None]
  - GENITAL RASH [None]
